FAERS Safety Report 13559425 (Version 1)
Quarter: 2017Q2

REPORT INFORMATION
  Report Type: Spontaneous
  Country: US (occurrence: US)
  Receive Date: 20170518
  Receipt Date: 20170518
  Transmission Date: 20170830
  Serious: No
  Sender: FDA-Public Use
  Company Number: US-LUPIN PHARMACEUTICALS INC.-E2B_00005387

PATIENT
  Age: 49 Year
  Sex: Female

DRUGS (1)
  1. QUETIAPINE TABLETS USP, 400 MG [Suspect]
     Active Substance: QUETIAPINE
     Indication: MENTAL DISORDER
     Dosage: 400 MG,BID,
     Route: 048
     Dates: start: 20160302, end: 20160426

REACTIONS (4)
  - Pain [Recovered/Resolved]
  - Drug ineffective [Unknown]
  - Product taste abnormal [Recovered/Resolved]
  - Dermal cyst [None]

NARRATIVE: CASE EVENT DATE: 20160423
